FAERS Safety Report 4439287-8 (Version None)
Quarter: 2004Q3

REPORT INFORMATION
  Report Type: 
  Country: None (occurrence: None)
  Receive Date: 20040831
  Receipt Date: 20040824
  Transmission Date: 20050211
  Serious: Yes (Death)
  Sender: FDA-Public Use
  Company Number: US-JNJFOC-20040807736

PATIENT
  Age: 35 Year
  Sex: Male

DRUGS (6)
  1. SIMPLY SLEEP (DIPHENHYDRAMINE HYDROCHLORIDE) CAPLET [Suspect]
     Indication: SUICIDE ATTEMPT
     Dosage: SEE IMAGE
     Route: 048
     Dates: start: 20000101
  2. SIMPLY SLEEP (DIPHENHYDRAMINE HYDROCHLORIDE) CAPLET [Suspect]
     Indication: SUICIDE ATTEMPT
     Dosage: SEE IMAGE
     Route: 048
     Dates: start: 20000201
  3. SIMPLY SLEEP (DIPHENHYDRAMINE HYDROCHLORIDE) CAPLET [Suspect]
     Indication: SUICIDE ATTEMPT
     Dosage: SEE IMAGE
     Route: 048
     Dates: start: 20040505
  4. ZYPREXA [Concomitant]
  5. LITHIUM CARBONATE [Concomitant]
  6. ABILIFY [Concomitant]

REACTIONS (1)
  - COMPLETED SUICIDE [None]
